FAERS Safety Report 22022036 (Version 2)
Quarter: 2023Q1

REPORT INFORMATION
  Report Type: Spontaneous
  Country: US (occurrence: US)
  Receive Date: 20230222
  Receipt Date: 20230301
  Transmission Date: 20230417
  Serious: No
  Sender: FDA-Public Use
  Company Number: US-Blueprint Medicines Corporation-SP-US-2023-000360

PATIENT
  Age: 35 Year
  Sex: Female

DRUGS (2)
  1. AYVAKIT [Suspect]
     Active Substance: AVAPRITINIB
     Indication: Haematopoietic neoplasm
     Route: 048
  2. AYVAKIT [Suspect]
     Active Substance: AVAPRITINIB
     Indication: Systemic mastocytosis
     Route: 065
     Dates: start: 20230205

REACTIONS (13)
  - Peripheral coldness [Not Recovered/Not Resolved]
  - Feeling of body temperature change [Unknown]
  - Night sweats [Recovered/Resolved]
  - Swelling face [Unknown]
  - Eye swelling [Recovering/Resolving]
  - Hunger [Unknown]
  - Weight increased [Unknown]
  - Abdominal distension [Unknown]
  - Eye pain [Unknown]
  - Nausea [Unknown]
  - Feeling abnormal [Unknown]
  - Constipation [Unknown]
  - Ageusia [Unknown]
